FAERS Safety Report 6302791-1 (Version None)
Quarter: 2009Q3

REPORT INFORMATION
  Report Type: 
  Country: None (occurrence: None)
  Receive Date: 20090810
  Receipt Date: 20090506
  Transmission Date: 20100115
  Serious: No
  Sender: FDA-Public Use
  Company Number: A0776621A

PATIENT
  Age: 8 Month
  Sex: Female

DRUGS (2)
  1. ALTABAX [Suspect]
     Indication: OPEN WOUND
     Route: 061
     Dates: start: 20090330, end: 20090330
  2. MICONAZOLE [Concomitant]

REACTIONS (4)
  - APPLICATION SITE IRRITATION [None]
  - CRYING [None]
  - DISCOMFORT [None]
  - DRUG INEFFECTIVE [None]
